FAERS Safety Report 10182637 (Version 1)
Quarter: 2014Q2

REPORT INFORMATION
  Report Type: Spontaneous
  Country: US (occurrence: None)
  Receive Date: 20140519
  Receipt Date: 20140519
  Transmission Date: 20141212
  Serious: Yes (Other)
  Sender: FDA-Public Use
  Company Number: None

PATIENT
  Age: 26 Year
  Sex: Male
  Weight: 58.97 kg

DRUGS (1)
  1. PERPHENAZINE/AMITRIPTYLINE [Suspect]
     Indication: BIPOLAR DISORDER
     Dosage: 1 PILL, ONCE DAILY, TAKEN BY MOUTH
     Route: 048
     Dates: start: 20090801, end: 20091001

REACTIONS (3)
  - Hallucinations, mixed [None]
  - Paranoia [None]
  - Abnormal behaviour [None]
